FAERS Safety Report 24107854 (Version 4)
Quarter: 2025Q1

REPORT INFORMATION
  Report Type: Report from Study
  Country: CN (occurrence: CN)
  Receive Date: 20240718
  Receipt Date: 20250225
  Transmission Date: 20250409
  Serious: Yes (Other)
  Sender: ROCHE
  Company Number: CN-ROCHE-10000015880

PATIENT
  Age: 61 Year
  Sex: Male
  Weight: 61.5 kg

DRUGS (48)
  1. POLATUZUMAB VEDOTIN [Suspect]
     Active Substance: POLATUZUMAB VEDOTIN
     Indication: Diffuse large B-cell lymphoma
     Route: 042
     Dates: start: 20240520, end: 20240520
  2. POLATUZUMAB VEDOTIN [Suspect]
     Active Substance: POLATUZUMAB VEDOTIN
     Route: 042
     Dates: start: 20240612, end: 20240612
  3. RITUXIMAB [Suspect]
     Active Substance: RITUXIMAB
     Indication: Diffuse large B-cell lymphoma
     Route: 042
     Dates: start: 20240516, end: 20240517
  4. RITUXIMAB [Suspect]
     Active Substance: RITUXIMAB
     Route: 042
     Dates: start: 20240611, end: 20240611
  5. RITUXIMAB [Suspect]
     Active Substance: RITUXIMAB
     Route: 042
     Dates: start: 20240702, end: 20240702
  6. RITUXIMAB [Suspect]
     Active Substance: RITUXIMAB
     Route: 042
     Dates: start: 20240724, end: 20240724
  7. RITUXIMAB [Suspect]
     Active Substance: RITUXIMAB
     Route: 042
     Dates: start: 20240816, end: 20240816
  8. CYCLOPHOSPHAMIDE [Suspect]
     Active Substance: CYCLOPHOSPHAMIDE
     Indication: Diffuse large B-cell lymphoma
     Route: 042
     Dates: start: 20240518, end: 20240518
  9. DOXORUBICIN HYDROCHLORIDE [Suspect]
     Active Substance: DOXORUBICIN HYDROCHLORIDE
     Indication: Diffuse large B-cell lymphoma
     Route: 042
  10. DEXAMETHASONE [Suspect]
     Active Substance: DEXAMETHASONE
     Indication: Diffuse large B-cell lymphoma
     Dosage: ON 13-MAY-2024, RECEIVED THE MOST RECENT DOSE.
     Route: 042
     Dates: start: 20240513, end: 20240521
  11. DEXAMETHASONE [Suspect]
     Active Substance: DEXAMETHASONE
     Route: 042
     Dates: start: 20240613, end: 20240617
  12. DEXAMETHASONE [Suspect]
     Active Substance: DEXAMETHASONE
     Route: 048
     Dates: start: 20240703, end: 20240703
  13. DEXAMETHASONE [Suspect]
     Active Substance: DEXAMETHASONE
     Route: 048
     Dates: start: 20240704, end: 20240707
  14. DEXAMETHASONE [Suspect]
     Active Substance: DEXAMETHASONE
     Route: 042
     Dates: start: 20240725, end: 20240725
  15. DEXAMETHASONE [Suspect]
     Active Substance: DEXAMETHASONE
     Route: 048
     Dates: start: 20240726, end: 20240729
  16. DEXAMETHASONE [Suspect]
     Active Substance: DEXAMETHASONE
     Route: 048
     Dates: start: 20240820, end: 20240820
  17. DEXAMETHASONE [Suspect]
     Active Substance: DEXAMETHASONE
     Route: 042
     Dates: start: 20240816, end: 20240819
  18. DEXAMETHASONE [Suspect]
     Active Substance: DEXAMETHASONE
     Route: 042
     Dates: start: 20240908, end: 20240910
  19. DEXAMETHASONE [Suspect]
     Active Substance: DEXAMETHASONE
     Route: 042
     Dates: start: 20240911, end: 20240912
  20. DOXORUBICIN HYDROCHLORIDE [Suspect]
     Active Substance: DOXORUBICIN HYDROCHLORIDE
     Indication: Diffuse large B-cell lymphoma
     Route: 042
     Dates: end: 20240522
  21. Rabeprazole Sodium for Injection [Concomitant]
     Route: 042
     Dates: start: 20240513, end: 20240617
  22. LORATADINE [Concomitant]
     Active Substance: LORATADINE
     Route: 048
     Dates: start: 20240513, end: 20240513
  23. SODIUM BICARBONATE [Concomitant]
     Active Substance: SODIUM BICARBONATE
     Route: 042
     Dates: start: 20240513, end: 20240515
  24. SODIUM BICARBONATE [Concomitant]
     Active Substance: SODIUM BICARBONATE
     Route: 042
     Dates: start: 20240516, end: 20240516
  25. Carbazochrome Sodium Sulfonate and Sodium Chloride Injection [Concomitant]
     Route: 042
     Dates: start: 20240514, end: 20240530
  26. FLUCONAZOLE [Concomitant]
     Active Substance: FLUCONAZOLE
     Route: 048
     Dates: start: 20240514, end: 20240527
  27. LEVOFLOXACIN [Concomitant]
     Active Substance: LEVOFLOXACIN
     Route: 048
     Dates: start: 20240515, end: 20240521
  28. FEBUXOSTAT [Concomitant]
     Active Substance: FEBUXOSTAT
     Route: 048
     Dates: start: 20240520, end: 20240527
  29. LEVETIRACETAM [Concomitant]
     Active Substance: LEVETIRACETAM
     Route: 048
     Dates: start: 20240521
  30. Sandostatin (Octreotide Acetate Injection) [Concomitant]
     Route: 058
     Dates: start: 20240521, end: 20240529
  31. Beraprost Sodium Tablets [Concomitant]
     Route: 048
     Dates: start: 20240513, end: 20240513
  32. ATORVASTATIN CALCIUM [Concomitant]
     Active Substance: ATORVASTATIN CALCIUM
     Route: 048
     Dates: start: 20240513, end: 20240513
  33. ESTAZOLAM [Concomitant]
     Active Substance: ESTAZOLAM
     Route: 048
     Dates: start: 20240513, end: 20240513
  34. ESTAZOLAM [Concomitant]
     Active Substance: ESTAZOLAM
     Route: 048
     Dates: start: 20240520, end: 20240520
  35. LEVOFLOXACIN [Concomitant]
     Active Substance: LEVOFLOXACIN
     Route: 042
     Dates: start: 20240513, end: 20240513
  36. Somatostatin for Injection [Concomitant]
     Route: 042
     Dates: start: 20240514, end: 20240514
  37. Fosappitan dimeglumine for injection [Concomitant]
     Route: 030
     Dates: start: 20240520, end: 20240520
  38. Fosappitan dimeglumine for injection [Concomitant]
     Route: 030
     Dates: start: 20240521, end: 20240521
  39. Fosappitan dimeglumine for injection [Concomitant]
     Route: 030
     Dates: start: 20240516, end: 20240516
  40. DEXAMETHASONE SODIUM PHOSPHATE [Concomitant]
     Active Substance: DEXAMETHASONE SODIUM PHOSPHATE
     Route: 042
     Dates: start: 20240520, end: 20240520
  41. Dexrazoxan for injection [Concomitant]
     Route: 042
     Dates: start: 20240521, end: 20240521
  42. Polyene Phosphatidylcholine Capsules [Concomitant]
     Route: 048
     Dates: start: 20240514, end: 20240613
  43. Alfacalcidol Soft Capsules [Concomitant]
     Route: 048
     Dates: start: 20240513, end: 20240514
  44. JIN SHUI BAO [Concomitant]
     Route: 048
     Dates: start: 20240513
  45. ACETYLCYSTEINE [Concomitant]
     Active Substance: ACETYLCYSTEINE
     Route: 042
     Dates: start: 20240513, end: 20240514
  46. METHYLPREDNISOLONE SODIUM SUCCINATE [Concomitant]
     Active Substance: METHYLPREDNISOLONE SODIUM SUCCINATE
     Route: 042
     Dates: start: 20240521, end: 20240521
  47. TIGECYCLINE [Concomitant]
     Active Substance: TIGECYCLINE
     Route: 042
     Dates: start: 20240521, end: 20240521
  48. BICYCLOL [Concomitant]
     Active Substance: BICYCLOL
     Route: 048
     Dates: start: 20240521, end: 20240521

REACTIONS (7)
  - White blood cell count decreased [Recovered/Resolved]
  - Seizure [Recovered/Resolved]
  - Aspartate aminotransferase increased [Recovered/Resolved]
  - Platelet count decreased [Recovered/Resolved]
  - Neutrophil count decreased [Recovered/Resolved]
  - Blood creatinine increased [Recovered/Resolved]
  - Epilepsy [Recovered/Resolved]

NARRATIVE: CASE EVENT DATE: 20240521
